FAERS Safety Report 11282570 (Version 1)
Quarter: 2015Q3

REPORT INFORMATION
  Report Type: Spontaneous
  Country: US (occurrence: None)
  Receive Date: 20150716
  Receipt Date: 20150716
  Transmission Date: 20151125
  Serious: Yes (Other)
  Sender: FDA-Public Use
  Company Number: ABR_02286_2015

PATIENT
  Age: 54 Year
  Sex: Female

DRUGS (1)
  1. EDARBYCLOR [Suspect]
     Active Substance: AZILSARTAN KAMEDOXOMIL\CHLORTHALIDONE
     Indication: HYPERTENSION
     Dosage: 1 DF QD,
     Route: 048
     Dates: start: 201506, end: 201506

REACTIONS (3)
  - Hypersensitivity [None]
  - Lip swelling [None]
  - Aphthous ulcer [None]

NARRATIVE: CASE EVENT DATE: 201506
